FAERS Safety Report 23397856 (Version 1)
Quarter: 2024Q1

REPORT INFORMATION
  Report Type: Spontaneous
  Country: US (occurrence: US)
  Receive Date: 20240112
  Receipt Date: 20240112
  Transmission Date: 20240409
  Serious: Yes (Other)
  Sender: FDA-Public Use
  Company Number: US-SA-SAC20240111001357

PATIENT
  Age: 71 Year
  Sex: Female

DRUGS (1)
  1. DUPIXENT [Suspect]
     Active Substance: DUPILUMAB
     Dosage: UNK
     Route: 058

REACTIONS (10)
  - Impaired gastric emptying [Unknown]
  - Urticaria cholinergic [Unknown]
  - Condition aggravated [Unknown]
  - Cholelithiasis [Unknown]
  - Irritable bowel syndrome [Unknown]
  - Headache [Unknown]
  - Skin lesion [Unknown]
  - Localised infection [Unknown]
  - Peripheral coldness [Unknown]
  - Pruritus [Unknown]

NARRATIVE: CASE EVENT DATE: 20231201
